FAERS Safety Report 5299660-5 (Version None)
Quarter: 2007Q2

REPORT INFORMATION
  Report Type: 
  Country: None (occurrence: None)
  Receive Date: 20070410
  Receipt Date: 20070402
  Transmission Date: 20071010
  Serious: Yes (Other)
  Sender: FDA-Public Use
  Company Number: 163-20785-07040189

PATIENT
  Age: 64 Year
  Sex: Female

DRUGS (5)
  1. THALOMID [Suspect]
     Indication: MULTIPLE MYELOMA
     Dosage: 200-50 MG, DAILY, ORAL
     Route: 048
     Dates: start: 20060824, end: 20061129
  2. ASPIRIN [Concomitant]
  3. LASIX [Concomitant]
  4. ROCALTROL [Concomitant]
  5. LISINOPRIL [Concomitant]

REACTIONS (2)
  - SKIN ULCER [None]
  - THROMBOSIS [None]
